FAERS Safety Report 25143670 (Version 1)
Quarter: 2025Q2

REPORT INFORMATION
  Report Type: Spontaneous
  Country: CA (occurrence: CA)
  Receive Date: 20250401
  Receipt Date: 20250401
  Transmission Date: 20250716
  Serious: Yes (Hospitalization)
  Sender: CHEPLAPHARM
  Company Number: CA-CHEPLA-2025004072

PATIENT
  Age: 71 Year
  Sex: Female

DRUGS (11)
  1. HYDROXYUREA [Suspect]
     Active Substance: HYDROXYUREA
  2. ACETAMINOPHEN [Concomitant]
     Active Substance: ACETAMINOPHEN
  3. AMLODIPINE [Concomitant]
     Active Substance: AMLODIPINE BESYLATE
  4. ATORVASTATIN CALCIUM [Concomitant]
     Active Substance: ATORVASTATIN CALCIUM
  5. CHOLECALCIFEROL [Concomitant]
     Active Substance: CHOLECALCIFEROL
  6. CLOPIDOGREL [Concomitant]
     Active Substance: CLOPIDOGREL BISULFATE
  7. GLICLAZIDE [Concomitant]
     Active Substance: GLICLAZIDE
  8. MELATONIN [Concomitant]
     Active Substance: MELATONIN
  9. METFORMIN [Concomitant]
     Active Substance: METFORMIN HYDROCHLORIDE
  10. PREGABALIN [Concomitant]
     Active Substance: PREGABALIN
  11. SENNOSIDES [Concomitant]
     Active Substance: SENNOSIDES

REACTIONS (5)
  - Anaemia [Unknown]
  - Headache [Unknown]
  - Pancytopenia [Unknown]
  - Pneumonia [Unknown]
  - Tachycardia [Unknown]
